FAERS Safety Report 7380017-8 (Version None)
Quarter: 2011Q1

REPORT INFORMATION
  Report Type: 
  Country: None (occurrence: None)
  Receive Date: 20110318
  Receipt Date: 20110303
  Transmission Date: 20110831
  Serious: Yes (Disabling)
  Sender: FDA-Public Use
  Company Number: AUR-APL-2011-00848

PATIENT
  Age: 72 Year
  Sex: Male
  Weight: 91.8 kg

DRUGS (7)
  1. ASPIRIN [Concomitant]
  2. AMLODIPINE [Suspect]
     Indication: HYPERTENSION
     Dosage: 10MG, DAILY, ORAL
     Route: 048
  3. ATORVASTATIN CALCIUM [Concomitant]
  4. BISOPROLOL [Concomitant]
  5. FINASTERIDE [Suspect]
     Indication: PROSTATIC DISORDER
     Dosage: 5 MG, DAILY, ORAL
     Route: 048
     Dates: start: 20101219, end: 20110201
  6. LISINOPRIL [Concomitant]
  7. ALFUZOSIN [Concomitant]

REACTIONS (5)
  - WRONG DRUG ADMINISTERED [None]
  - MYALGIA [None]
  - DRUG DISPENSING ERROR [None]
  - MUSCULOSKELETAL PAIN [None]
  - ARTHRALGIA [None]
